FAERS Safety Report 7141341-7 (Version None)
Quarter: 2010Q4

REPORT INFORMATION
  Report Type: 
  Country: None (occurrence: None)
  Receive Date: 20101207
  Receipt Date: 20101129
  Transmission Date: 20110411
  Serious: Yes (Death, Other)
  Sender: FDA-Public Use
  Company Number: PHHY2010JP38630

PATIENT
  Sex: Female

DRUGS (20)
  1. ICL670A ICL+DISTAB [Suspect]
     Indication: MYELODYSPLASTIC SYNDROME
     Dosage: 875 MG DAILY
     Route: 048
     Dates: start: 20081001, end: 20081119
  2. ICL670A ICL+DISTAB [Suspect]
     Dosage: 1000MG DAILY
     Route: 048
     Dates: start: 20081120, end: 20081126
  3. ICL670A ICL+DISTAB [Suspect]
     Dosage: 750MG DAILY
     Route: 048
     Dates: start: 20081127, end: 20081203
  4. ICL670A ICL+DISTAB [Suspect]
     Dosage: 875MG DAILY
     Route: 048
     Dates: start: 20081204, end: 20090107
  5. ICL670A ICL+DISTAB [Suspect]
     Dosage: 1000MG DAILY
     Route: 048
     Dates: start: 20090108, end: 20090114
  6. ICL670A ICL+DISTAB [Suspect]
     Dosage: 750MG  DAILY
     Route: 048
     Dates: start: 20090115, end: 20090128
  7. ICL670A ICL+DISTAB [Suspect]
     Dosage: 875MG DAILY
     Route: 048
     Dates: start: 20090129, end: 20090624
  8. PREDNISOLONE [Concomitant]
     Indication: MYELODYSPLASTIC SYNDROME
     Dosage: 15MG
     Route: 048
     Dates: start: 20081001, end: 20090806
  9. GLYNASE [Concomitant]
     Dosage: 40MG
     Route: 048
     Dates: start: 20081001, end: 20090724
  10. DIFLUCAN [Concomitant]
     Dosage: 200MG
     Route: 048
     Dates: start: 20081001, end: 20090709
  11. GLAKAY [Concomitant]
     Indication: MYELODYSPLASTIC SYNDROME
     Dosage: 15MG
     Route: 048
     Dates: start: 20081001, end: 20081126
  12. CRAVIT [Concomitant]
     Dosage: 300MG
     Route: 048
     Dates: start: 20090401, end: 20090622
  13. FIRSTCIN [Concomitant]
     Dosage: 2G
     Dates: start: 20090618, end: 20090726
  14. VANCOMYCIN [Concomitant]
     Dosage: 0.5G
     Dates: start: 20090727, end: 20090729
  15. ZYVOX [Concomitant]
     Dosage: 600MG
     Dates: start: 20090731
  16. CIPROFLOXACIN HCL [Concomitant]
     Dosage: 300MG
     Dates: start: 20090728
  17. VFEND [Concomitant]
     Dosage: 160MG
     Dates: start: 20090805
  18. RED BLOOD CELLS, CONCENTRATED [Concomitant]
     Dosage: 2 UNITS EVERY 3-4 DAYS
     Dates: start: 20081008
  19. RED BLOOD CELLS, CONCENTRATED [Concomitant]
     Dosage: 2 UNITS EVERY 2 WEEKS
     Dates: start: 20090401, end: 20090610
  20. RED BLOOD CELLS, CONCENTRATED [Concomitant]
     Dosage: 2 UNITS EVERY 2-5 DAYS
     Dates: start: 20090618, end: 20090804

REACTIONS (8)
  - ANAEMIA [None]
  - MALIGNANT NEOPLASM PROGRESSION [None]
  - MONOCYTE COUNT ABNORMAL [None]
  - RASH [None]
  - SEPSIS [None]
  - SERUM FERRITIN INCREASED [None]
  - THROMBOCYTOPENIA [None]
  - WHITE BLOOD CELL COUNT INCREASED [None]
